FAERS Safety Report 5332577-6 (Version None)
Quarter: 2007Q2

REPORT INFORMATION
  Report Type: 
  Country: None (occurrence: None)
  Receive Date: 20070523
  Receipt Date: 20070510
  Transmission Date: 20071010
  Serious: Yes (Hospitalization)
  Sender: FDA-Public Use
  Company Number: US-SHR-US-2007-002816

PATIENT
  Age: 36 Year
  Sex: Female

DRUGS (7)
  1. BETASERON [Suspect]
     Indication: RELAPSING-REMITTING MULTIPLE SCLEROSIS
     Dosage: 8 MIU, EVERY 2D
     Route: 058
     Dates: start: 20060925, end: 20070411
  2. BETASERON [Suspect]
     Dosage: 8 MIU, EVERY 2D
     Route: 058
     Dates: start: 20070418
  3. BETHANECHOL [Concomitant]
     Indication: URINARY INCONTINENCE
  4. BUTALBITAL [Concomitant]
     Indication: HEADACHE
  5. TRAZODONE HCL [Concomitant]
  6. AMITRIPTYLINE HCL [Concomitant]
     Indication: INSOMNIA
  7. BACLOFEN [Concomitant]

REACTIONS (7)
  - ABDOMINAL PAIN UPPER [None]
  - DECREASED APPETITE [None]
  - INJECTION SITE ERYTHEMA [None]
  - MULTIPLE SCLEROSIS [None]
  - PYREXIA [None]
  - THERMAL BURN [None]
  - TREMOR [None]
